FAERS Safety Report 7233152-9 (Version None)
Quarter: 2011Q1

REPORT INFORMATION
  Report Type: 
  Country: None (occurrence: None)
  Receive Date: 20110119
  Receipt Date: 20071220
  Transmission Date: 20110831
  Serious: Yes (Other)
  Sender: FDA-Public Use
  Company Number: PHHY2007MX03741

PATIENT
  Sex: Female

DRUGS (1)
  1. TEGRETOL [Suspect]
     Indication: ANXIETY
     Dosage: 200 MG, QD
     Route: 048
     Dates: start: 20070301

REACTIONS (2)
  - DEMENTIA ALZHEIMER'S TYPE [None]
  - MALAISE [None]
